FAERS Safety Report 9458641 (Version 1)
Quarter: 2013Q3

REPORT INFORMATION
  Report Type: Spontaneous
  Country: CH (occurrence: CH)
  Receive Date: 20130814
  Receipt Date: 20130814
  Transmission Date: 20140515
  Serious: Yes (Life-Threatening)
  Sender: FDA-Public Use
  Company Number: CH-UCBSA-094212

PATIENT
  Age: 69 Year
  Sex: Male

DRUGS (2)
  1. KEPPRA [Suspect]
     Indication: EPILEPSY
     Dosage: DAILY DOSE : 2000 MG
     Dates: start: 20130528
  2. DEXAMETHASONE [Suspect]
     Indication: BRAIN OEDEMA
     Dosage: DAILY DOSE: 16 MG
     Dates: start: 20130611

REACTIONS (1)
  - Sepsis [Recovering/Resolving]
